FAERS Safety Report 7358585-1 (Version None)
Quarter: 2011Q1

REPORT INFORMATION
  Report Type: 
  Country: None (occurrence: None)
  Receive Date: 20110317
  Receipt Date: 20110311
  Transmission Date: 20110831
  Serious: Yes (Hospitalization)
  Sender: FDA-Public Use
  Company Number: FR-MERCK-1103FRA00072

PATIENT
  Age: 58 Year
  Sex: Male
  Weight: 143 kg

DRUGS (5)
  1. GLIMEPIRIDE [Suspect]
     Indication: TYPE 2 DIABETES MELLITUS
     Route: 048
     Dates: end: 20110112
  2. JANUVIA [Suspect]
     Indication: TYPE 2 DIABETES MELLITUS
     Route: 048
     Dates: end: 20110112
  3. FLECAINIDE ACETATE [Concomitant]
     Route: 048
     Dates: start: 20070101
  4. NEBIVOLOL HYDROCHLORIDE [Concomitant]
     Route: 048
  5. ASPIRIN LYSINE [Concomitant]
     Route: 048

REACTIONS (4)
  - HYPOGLYCAEMIA [None]
  - MALAISE [None]
  - DELIRIUM [None]
  - AGITATION [None]
